FAERS Safety Report 15733602 (Version 1)
Quarter: 2018Q4

REPORT INFORMATION
  Report Type: Spontaneous
  Country: IT (occurrence: IT)
  Receive Date: 20181218
  Receipt Date: 20181218
  Transmission Date: 20190205
  Serious: Yes (Other)
  Sender: FDA-Public Use
  Company Number: IT-CELLTRION INC.-2018IT022600

PATIENT

DRUGS (1)
  1. INFLIXIMAB PFIZER (UNKNOWN) [Suspect]
     Active Substance: INFLIXIMAB
     Indication: PITYRIASIS RUBRA PILARIS
     Dosage: 5 MG/KG (AT WEEK 0,2,6 AND EVERY 8 WEEKS)
     Route: 065

REACTIONS (3)
  - Renal failure [Unknown]
  - Drug ineffective for unapproved indication [Unknown]
  - Skin infection [Unknown]
